FAERS Safety Report 20588983 (Version 1)
Quarter: 2022Q1

REPORT INFORMATION
  Report Type: Report from Study
  Country: CA (occurrence: CA)
  Receive Date: 20220314
  Receipt Date: 20220314
  Transmission Date: 20220424
  Serious: Yes (Hospitalization, Other)
  Sender: FDA-Public Use
  Company Number: CA-JNJFOC-20220225754

PATIENT
  Age: 23 Year
  Sex: Male
  Weight: 48.5 kg

DRUGS (3)
  1. REMICADE [Suspect]
     Active Substance: INFLIXIMAB
     Indication: Colitis ulcerative
     Dosage: WOULD RECEIVE STAT DOSE 10 MG/KG IN HOSPITAL
     Route: 042
     Dates: start: 20220110
  2. REMICADE [Suspect]
     Active Substance: INFLIXIMAB
     Route: 042
     Dates: start: 20220208
  3. REMICADE [Suspect]
     Active Substance: INFLIXIMAB
     Route: 042
     Dates: start: 20220209

REACTIONS (8)
  - Syncope [Unknown]
  - Haematochezia [Unknown]
  - Colectomy [Unknown]
  - Haemoglobin decreased [Unknown]
  - Frequent bowel movements [Unknown]
  - Incorrect dose administered [Unknown]
  - Off label use [Unknown]
  - Therapy non-responder [Unknown]

NARRATIVE: CASE EVENT DATE: 20220101
